FAERS Safety Report 26063698 (Version 1)
Quarter: 2025Q4

REPORT INFORMATION
  Report Type: Report from Study
  Country: CN (occurrence: CN)
  Receive Date: 20251119
  Receipt Date: 20251119
  Transmission Date: 20260118
  Serious: Yes (Death, Other)
  Sender: ROCHE
  Company Number: CN-ROCHE-10000434608

PATIENT
  Age: 74 Year
  Sex: Male

DRUGS (1)
  1. COLUMVI [Suspect]
     Active Substance: GLOFITAMAB-GXBM
     Indication: Lymphoma
     Dosage: INJECTIONS IN THE FIRST CYCLE, 0.25 INJECTIONS ON THE FIRST DAY, 0.75 INJECTIONS ON THE SECOND DAY,
     Route: 065
     Dates: start: 202507

REACTIONS (6)
  - Hyperpyrexia [Unknown]
  - Haematuria [Unknown]
  - Constipation [Unknown]
  - Vomiting [Unknown]
  - Decreased appetite [Unknown]
  - Completed suicide [Fatal]

NARRATIVE: CASE EVENT DATE: 20250701
